FAERS Safety Report 6909392-2 (Version None)
Quarter: 2010Q3

REPORT INFORMATION
  Report Type: 
  Country: None (occurrence: None)
  Receive Date: 20100805
  Receipt Date: 20100803
  Transmission Date: 20110219
  Serious: Yes (Other)
  Sender: FDA-Public Use
  Company Number: US-RB-013470-10

PATIENT
  Age: 25 Year
  Sex: Female

DRUGS (2)
  1. SUBOXONE [Suspect]
     Indication: DRUG DEPENDENCE
     Route: 060
     Dates: start: 20090101, end: 20100801
  2. DILANTIN [Concomitant]
     Indication: EPILEPSY
     Dosage: DOSING DETAILS UNKNOWN
     Route: 065
     Dates: start: 20080101

REACTIONS (7)
  - ABDOMINAL PAIN UPPER [None]
  - CONVULSION [None]
  - DRUG WITHDRAWAL SYNDROME [None]
  - HEADACHE [None]
  - INSOMNIA [None]
  - PANIC ATTACK [None]
  - TOURETTE'S DISORDER [None]
